FAERS Safety Report 4431077-5 (Version None)
Quarter: 2004Q3

REPORT INFORMATION
  Report Type: 
  Country: None (occurrence: None)
  Receive Date: 20040824
  Receipt Date: 20040819
  Transmission Date: 20050211
  Serious: Yes (Hospitalization)
  Sender: FDA-Public Use
  Company Number: PHBS2004IE10906

PATIENT
  Sex: Male

DRUGS (2)
  1. LIORESAL [Suspect]
     Dosage: 240 MG/DAY
     Route: 048
     Dates: start: 20030601
  2. LIORESAL [Suspect]
     Dosage: 180 MG/DAY
     Route: 048

REACTIONS (3)
  - DYSKINESIA [None]
  - INFECTION [None]
  - MUSCLE SPASTICITY [None]
